FAERS Safety Report 9145475 (Version 1)
Quarter: 2013Q1

REPORT INFORMATION
  Report Type: Spontaneous
  Country: US (occurrence: None)
  Receive Date: 20130214
  Receipt Date: 20130214
  Transmission Date: 20140127
  Serious: Yes (Death)
  Sender: FDA-Public Use
  Company Number: 2013020041

PATIENT
  Age: 20 Year
  Sex: Male

DRUGS (8)
  1. CARISOPRODOL (CARISOPRODOL) [Suspect]
     Indication: DRUG ABUSE
     Route: 048
  2. ZOLPIDEM [Suspect]
     Route: 048
  3. OXYMORPHONE [Suspect]
     Route: 048
  4. ALPRAZOLAM (ALPRAZOLAM) [Suspect]
     Route: 048
  5. CITALOPRAM (CITALOPRAM) [Suspect]
     Route: 048
  6. CITALOPRAM (CITALOPRAM) [Suspect]
     Route: 048
  7. CLONAZEPAM (CLONAZEPAM) (CLONAZEPAM) [Suspect]
     Route: 048
  8. TETRAHYDROCANNABINOL [Suspect]
     Route: 048

REACTIONS (3)
  - Respiratory arrest [None]
  - Cardiac arrest [None]
  - Drug abuse [None]
